FAERS Safety Report 6065004-4 (Version None)
Quarter: 2009Q1

REPORT INFORMATION
  Report Type: 
  Country: None (occurrence: None)
  Receive Date: 20090204
  Receipt Date: 20090127
  Transmission Date: 20090719
  Serious: Yes (Hospitalization)
  Sender: FDA-Public Use
  Company Number: FR-ASTRAZENECA-2009CG00284

PATIENT
  Age: 30693 Day
  Sex: Female

DRUGS (12)
  1. NEXIUM [Suspect]
     Indication: OESOPHAGITIS
     Route: 048
  2. COUMADIN [Interacting]
     Indication: THROMBOPHLEBITIS
     Route: 048
     Dates: end: 20081027
  3. VFEND [Interacting]
     Indication: FUNGAL INFECTION
     Route: 048
     Dates: start: 20081025, end: 20081027
  4. DEROXAT [Interacting]
     Indication: DEPRESSION
     Route: 048
  5. CORDARONE [Interacting]
     Indication: ATRIAL FIBRILLATION
     Route: 048
  6. ROCEPHIN [Interacting]
     Indication: LUNG DISORDER
  7. TARGOCID [Interacting]
     Indication: LUNG DISORDER
     Route: 048
  8. AMLOD [Concomitant]
     Indication: HYPERTENSION
     Route: 048
  9. LASILIX [Concomitant]
     Indication: HYPERTENSION
     Route: 048
  10. ATHYMIL [Concomitant]
     Indication: DEPRESSION
     Route: 048
  11. REMINYL [Concomitant]
     Indication: DEMENTIA ALZHEIMER'S TYPE
     Route: 048
  12. ACETAMINOPHEN [Concomitant]
     Indication: PAIN
     Route: 048

REACTIONS (2)
  - DRUG INTERACTION [None]
  - INTERNATIONAL NORMALISED RATIO INCREASED [None]
